FAERS Safety Report 18381690 (Version 3)
Quarter: 2020Q4

REPORT INFORMATION
  Report Type: Spontaneous
  Country: DE (occurrence: DE)
  Receive Date: 20201014
  Receipt Date: 20201106
  Transmission Date: 20210114
  Serious: Yes (Other)
  Sender: FDA-Public Use
  Company Number: DE-TORRENT-00018706

PATIENT
  Age: 79 Year
  Sex: Male
  Weight: 65 kg

DRUGS (9)
  1. LAMOTRIGINE. [Suspect]
     Active Substance: LAMOTRIGINE
     Indication: EPILEPSY
     Dosage: 150-0-1150MG
     Dates: start: 20180211
  2. ASS ABZ PROTECT [Concomitant]
     Indication: PROPHYLAXIS
     Dosage: 1-0-0 AFTER THE MEAL
  3. GLIVEC [Concomitant]
     Active Substance: IMATINIB MESYLATE
     Indication: CHRONIC MYELOID LEUKAEMIA
     Dosage: 4X100MG
     Dates: start: 20020211
  4. RAMIPRIL-ISIS [Concomitant]
     Indication: BLOOD PRESSURE MEASUREMENT
     Dosage: UNKNOWN
     Dates: start: 20190705
  5. TAVOR [Concomitant]
     Indication: MYOCARDIAL INFARCTION
     Dosage: IN CASE OF AN ATTACK IN EMERGENCY
  6. LEVETIRACETAM. [Suspect]
     Active Substance: LEVETIRACETAM
     Indication: EPILEPSY
     Dosage: 500 - 0 - 750MG
     Route: 048
     Dates: start: 20190913
  7. SIMVA BASICS [Concomitant]
     Active Substance: SIMVASTATIN
     Indication: BLOOD CHOLESTEROL
     Dosage: 0-0-1,WITH OR AFTER THE MEAL
  8. TASIGNA [Concomitant]
     Active Substance: NILOTINIB
     Indication: PRODUCT USED FOR UNKNOWN INDICATION
     Dates: start: 201310
  9. ZOPICLODURA [Concomitant]
     Active Substance: ZOPICLONE
     Indication: SLEEP DISORDER
     Dosage: ONLY IN EMERGENCY IN CASE

REACTIONS (7)
  - Basal cell carcinoma [Not Recovered/Not Resolved]
  - Fatigue [Not Recovered/Not Resolved]
  - Adverse reaction [Unknown]
  - Depression [Not Recovered/Not Resolved]
  - Vertigo positional [Not Recovered/Not Resolved]
  - Dizziness [Not Recovered/Not Resolved]
  - Gait disturbance [Not Recovered/Not Resolved]

NARRATIVE: CASE EVENT DATE: 20190920
